FAERS Safety Report 4538504-3 (Version None)
Quarter: 2004Q4

REPORT INFORMATION
  Report Type: 
  Country: None (occurrence: None)
  Receive Date: 20041227
  Receipt Date: 20041208
  Transmission Date: 20050328
  Serious: Yes (Disabling)
  Sender: FDA-Public Use
  Company Number: CA-BOEHRINGER INGELHEIM PHARMMACEUTICALS, INC.-2004-UK-01321UK

PATIENT
  Sex: Female
  Weight: 84 kg

DRUGS (6)
  1. MICARDIS (PROFESS STUDY 00015/0205/A) [Suspect]
     Indication: CEREBROVASCULAR ACCIDENT PROPHYLAXIS
     Route: 048
     Dates: start: 20041120, end: 20041202
  2. CLOPIDOGREL (AGGRENOX REFERENCE) [Suspect]
     Indication: CEREBROVASCULAR ACCIDENT PROPHYLAXIS
     Route: 048
     Dates: start: 20041120
  3. PLACEBO [Suspect]
     Indication: CEREBROVASCULAR ACCIDENT PROPHYLAXIS
     Dosage: 200/25 MG
     Route: 048
     Dates: start: 20041120
  4. ACCUPRIL [Suspect]
     Indication: HYPERTENSION
     Route: 048
     Dates: start: 20010101, end: 20041202
  5. METOPROLOL [Concomitant]
     Indication: HYPERTENSION
     Route: 048
     Dates: start: 20010101
  6. HCTZ/TRIAMTERONE [Concomitant]
     Indication: HYPERTENSION
     Dosage: 25/50 MG
     Route: 048
     Dates: start: 20010101, end: 20041202

REACTIONS (1)
  - RENAL FAILURE [None]
